FAERS Safety Report 4578440-X (Version None)
Quarter: 2005Q1

REPORT INFORMATION
  Report Type: 
  Country: None (occurrence: None)
  Receive Date: 20050204
  Receipt Date: 20050204
  Transmission Date: 20050727
  Serious: Yes (Life-Threatening, Hospitalization)
  Sender: FDA-Public Use
  Company Number: None

PATIENT
  Sex: Female
  Weight: 81 kg

DRUGS (9)
  1. IMATINIB MESYLATE 100MG CAPSULES, NOVARTIS [Suspect]
     Indication: GLIOBLASTOMA MULTIFORME
     Dosage: 400MG, BID, PO X 6 DAYS
     Route: 048
     Dates: start: 20050113, end: 20050120
  2. TEMOZOLOMIDE, SCHERING-PLOUGH [Suspect]
     Indication: GLIOBLASTOMA MULTIFORME
     Dosage: 400MG DAILY PO X 5 DAYS
     Route: 048
     Dates: start: 20050116, end: 20050120
  3. DECADRON [Concomitant]
  4. LIPITOR [Concomitant]
  5. ZESTRIL [Concomitant]
  6. ATENOLOL [Concomitant]
  7. MULTIVIT [Concomitant]
  8. DIAZIDE [Concomitant]
  9. TYLENOL [Concomitant]

REACTIONS (8)
  - ABDOMINAL PAIN [None]
  - ASTHENIA [None]
  - BLOOD PRESSURE DECREASED [None]
  - COGNITIVE DISORDER [None]
  - CONFUSIONAL STATE [None]
  - DEHYDRATION [None]
  - PNEUMONIA [None]
  - URINARY TRACT INFECTION [None]
